FAERS Safety Report 4693684-4 (Version None)
Quarter: 2005Q2

REPORT INFORMATION
  Report Type: 
  Country: None (occurrence: None)
  Receive Date: 20050615
  Receipt Date: 20050604
  Transmission Date: 20051028
  Serious: Yes (Other)
  Sender: FDA-Public Use
  Company Number: 2005064282

PATIENT
  Age: 60 Year
  Sex: Male
  Weight: 91.6266 kg

DRUGS (4)
  1. LIPITOR [Suspect]
     Indication: BLOOD CHOLESTEROL INCREASED
     Dosage: 1 IN 1 D
     Dates: start: 19970101, end: 20050221
  2. RAMIPRIL [Concomitant]
  3. CARVEDILOL [Concomitant]
  4. EZETIMIBE [Concomitant]

REACTIONS (7)
  - ARRHYTHMIA [None]
  - BLOOD CHOLESTEROL INCREASED [None]
  - CONDITION AGGRAVATED [None]
  - DRUG INEFFECTIVE [None]
  - MYALGIA [None]
  - MYOCARDIAL INFARCTION [None]
  - UNEVALUABLE EVENT [None]
